FAERS Safety Report 7665742 (Version 3)
Quarter: 2014Q2

REPORT INFORMATION
  Report Type: Spontaneous
  Country: US (occurrence: US)
  Receive Date: 20101112
  Receipt Date: 20140404
  Transmission Date: 20141212
  Serious: Yes (Hospitalization, Other)
  Sender: FDA-Public Use
  Company Number: US-PFIZER INC-2010139831

PATIENT
  Age: 55 Year
  Sex: Female
  Weight: 70 kg

DRUGS (16)
  1. DILANTIN [Suspect]
     Indication: CONVULSION PROPHYLAXIS
     Dosage: 300 MG, 1X/DAY
     Route: 048
     Dates: start: 20081124
  2. MUCOMYST [Concomitant]
     Dosage: 600 MG, 2X/DAY
     Route: 048
     Dates: start: 20081124, end: 20081126
  3. ASPIRIN [Concomitant]
     Dosage: 81 MG, DAILY
     Route: 048
     Dates: start: 20081124
  4. PLAVIX [Concomitant]
     Dosage: 75 MG, DAILY
     Route: 048
     Dates: start: 20081124
  5. DOCUSATE [Concomitant]
     Dosage: 100 MG, 1X/DAY (BED TIME)
     Route: 048
     Dates: start: 20081124
  6. CYMBALTA [Concomitant]
     Dosage: 60 MG, DAILY
     Route: 048
     Dates: start: 20081124
  7. PEPCID [Concomitant]
     Dosage: 20 MG, 2X/DAY
     Route: 048
     Dates: start: 20081124
  8. LISINOPRIL [Concomitant]
     Dosage: 10 MG, DAILY
     Route: 048
     Dates: start: 20081124
  9. METOPROLOL [Concomitant]
     Dosage: 75 MG, 2X/DAY
     Route: 048
     Dates: start: 20081124
  10. NICOTINE [Concomitant]
     Dosage: 21MG/24H, DAILY
     Route: 062
     Dates: start: 20081124
  11. NITRO-BID [Concomitant]
     Dosage: 2 %, 4X/DAY
     Route: 061
     Dates: start: 20081124
  12. OMEPRAZOLE [Concomitant]
     Dosage: 20 MG, DAILY
     Route: 048
     Dates: start: 20081124
  13. SIMVASTATIN [Concomitant]
     Dosage: 20 MG, 1X/DAY (BED TIME)
     Route: 048
     Dates: start: 20081124
  14. ACETAMINOPHEN [Concomitant]
     Indication: PYREXIA
     Dosage: 650 MG, EVERY 4 HRS
     Route: 048
     Dates: start: 20081124
  15. PERCOCET [Concomitant]
     Indication: PAIN
     Dosage: 5MG/325MG, 1 DF, EVERY 4 HRS
     Route: 048
     Dates: start: 20081124
  16. LOVENOX [Concomitant]
     Dosage: 40 MG, DAILY
     Dates: start: 20081124

REACTIONS (1)
  - Stevens-Johnson syndrome [Recovered/Resolved]
